FAERS Safety Report 7998959-9 (Version None)
Quarter: 2011Q4

REPORT INFORMATION
  Report Type: 
  Country: None (occurrence: None)
  Receive Date: 20111221
  Receipt Date: 20111214
  Transmission Date: 20120403
  Serious: Yes (Other)
  Sender: FDA-Public Use
  Company Number: PHHY2011US109330

PATIENT
  Age: 74 Year
  Sex: Male

DRUGS (3)
  1. LISTERINE [Concomitant]
  2. NOZEMA [Concomitant]
  3. BUFFERIN [Suspect]
     Dosage: 81 MG, UNK

REACTIONS (5)
  - DIABETES MELLITUS [None]
  - MUSCULOSKELETAL DISORDER [None]
  - STRESS [None]
  - PROSTATE INFECTION [None]
  - OCULAR HYPERAEMIA [None]
